FAERS Safety Report 8134186-2 (Version None)
Quarter: 2012Q1

REPORT INFORMATION
  Report Type: 
  Country: None (occurrence: None)
  Receive Date: 20120214
  Receipt Date: 20120206
  Transmission Date: 20120608
  Serious: Yes (Hospitalization, Disabling)
  Sender: FDA-Public Use
  Company Number: US-BAYER-2012-012300

PATIENT
  Sex: Female

DRUGS (3)
  1. DROSPIRENONE AND ETHINYL ESTRADIOL [Suspect]
  2. YAZ [Suspect]
     Dosage: UNK
     Dates: start: 20060601, end: 20071201
  3. YASMIN [Suspect]

REACTIONS (7)
  - GALLBLADDER DISORDER [None]
  - INJURY [None]
  - ANXIETY [None]
  - DEFORMITY [None]
  - ANHEDONIA [None]
  - UNEVALUABLE EVENT [None]
  - PAIN [None]
